FAERS Safety Report 6654976-2 (Version None)
Quarter: 2010Q1

REPORT INFORMATION
  Report Type: 
  Country: None (occurrence: None)
  Receive Date: 20100329
  Receipt Date: 20100319
  Transmission Date: 20100710
  Serious: No
  Sender: FDA-Public Use
  Company Number: US-BIOGENIDEC-2010BI009636

PATIENT
  Age: 37 Year
  Sex: Female

DRUGS (1)
  1. AVONEX [Suspect]
     Indication: MULTIPLE SCLEROSIS
     Route: 030
     Dates: start: 20070220

REACTIONS (6)
  - COORDINATION ABNORMAL [None]
  - HYPOAESTHESIA [None]
  - JOINT STIFFNESS [None]
  - MULTIPLE SCLEROSIS [None]
  - MUSCULOSKELETAL STIFFNESS [None]
  - OPTIC NEURITIS [None]
